FAERS Safety Report 4773688-3 (Version None)
Quarter: 2005Q3

REPORT INFORMATION
  Report Type: 
  Country: None (occurrence: None)
  Receive Date: 20050914
  Receipt Date: 20050811
  Transmission Date: 20060218
  Serious: Yes (Other)
  Sender: FDA-Public Use
  Company Number: 415155

PATIENT

DRUGS (1)
  1. BONIVA [Suspect]
     Dosage: 150 MG ORAL
     Route: 048

REACTIONS (1)
  - OEDEMA PERIPHERAL [None]
